FAERS Safety Report 17050539 (Version 1)
Quarter: 2019Q4

REPORT INFORMATION
  Report Type: Report from Study
  Country: US (occurrence: US)
  Receive Date: 20191119
  Receipt Date: 20191119
  Transmission Date: 20200122
  Serious: Yes (Hospitalization, Other)
  Sender: FDA-Public Use
  Company Number: US-GILEAD-2019-0438089

PATIENT
  Sex: Male

DRUGS (11)
  1. GAS-X [Concomitant]
     Active Substance: DIMETHICONE
  2. LAMICTAL [Concomitant]
     Active Substance: LAMOTRIGINE
  3. ALBUTEROL SULFATE. [Concomitant]
     Active Substance: ALBUTEROL SULFATE
  4. AZELASTINE HYDROCHLORIDE. [Concomitant]
     Active Substance: AZELASTINE HYDROCHLORIDE
  5. BENTYL [Concomitant]
     Active Substance: DICYCLOMINE HYDROCHLORIDE
  6. AZTREONAM LYSINE [Suspect]
     Active Substance: AZTREONAM LYSINE
     Indication: PRODUCT USED FOR UNKNOWN INDICATION
     Dosage: 75 MG, TID, QOM
     Route: 055
     Dates: start: 2016
  7. PREVACID [Concomitant]
     Active Substance: LANSOPRAZOLE
  8. KLONOPIN [Concomitant]
     Active Substance: CLONAZEPAM
  9. COLISTIN SULFATE [Concomitant]
     Active Substance: COLISTIN SULFATE
  10. ERYTHROMYCIN. [Concomitant]
     Active Substance: ERYTHROMYCIN
  11. BENADRYL [Concomitant]
     Active Substance: DIPHENHYDRAMINE HYDROCHLORIDE

REACTIONS (1)
  - Spinal operation [Unknown]
